FAERS Safety Report 7545130-0 (Version None)
Quarter: 2011Q2

REPORT INFORMATION
  Report Type: 
  Country: None (occurrence: None)
  Receive Date: 20110606
  Receipt Date: 20110523
  Transmission Date: 20111010
  Serious: Yes (Congenital Anomaly)
  Sender: FDA-Public Use
  Company Number: US-ACCORD-009393

PATIENT
  Sex: Male

DRUGS (1)
  1. MYCOPHENOLATE MOFETIL [Suspect]
     Indication: PRODUCT USED FOR UNKNOWN INDICATION

REACTIONS (5)
  - PULMONARY VALVE STENOSIS [None]
  - ANOMALOUS PULMONARY VENOUS CONNECTION [None]
  - CRANIOFACIAL DYSOSTOSIS [None]
  - DOUBLE OUTLET RIGHT VENTRICLE [None]
  - MITRAL VALVE ATRESIA [None]
